FAERS Safety Report 25947411 (Version 1)
Quarter: 2025Q4

REPORT INFORMATION
  Report Type: Spontaneous
  Country: US (occurrence: US)
  Receive Date: 20251022
  Receipt Date: 20251022
  Transmission Date: 20260119
  Serious: Yes (Hospitalization, Other)
  Sender: IPSEN BIOPHARMACEUTICALS, INC.
  Company Number: US-IPSEN Group, Research and Development-2025-26024

PATIENT
  Age: 61 Year
  Sex: Female

DRUGS (1)
  1. DYSPORT [Suspect]
     Active Substance: ABOBOTULINUMTOXINA
     Indication: Product used for unknown indication
     Dosage: SDV 500UNIT
     Route: 030

REACTIONS (6)
  - Rectal haemorrhage [Unknown]
  - Dysphagia [Unknown]
  - Dyspnoea [Unknown]
  - Gastrointestinal injury [Unknown]
  - Delayed recovery from anaesthesia [Unknown]
  - Weaning failure [Unknown]
